FAERS Safety Report 15825018 (Version 3)
Quarter: 2019Q2

REPORT INFORMATION
  Report Type: Report from Study
  Country: DE (occurrence: DE)
  Receive Date: 20190115
  Receipt Date: 20190426
  Transmission Date: 20190711
  Serious: No
  Sender: FDA-Public Use
  Company Number: DE-ROCHE-2245268

PATIENT
  Age: 28 Year
  Sex: Female
  Weight: 86 kg

DRUGS (1)
  1. OCRELIZUMAB. [Suspect]
     Active Substance: OCRELIZUMAB
     Indication: MULTIPLE SCLEROSIS
     Route: 048
     Dates: start: 20180604, end: 20180618

REACTIONS (4)
  - Oral fungal infection [Recovered/Resolved]
  - Depression [Not Recovered/Not Resolved]
  - Nasopharyngitis [Recovered/Resolved]
  - Urticaria [Recovered/Resolved]

NARRATIVE: CASE EVENT DATE: 201809
